FAERS Safety Report 26034684 (Version 1)
Quarter: 2025Q4

REPORT INFORMATION
  Report Type: Other
  Country: IN (occurrence: IN)
  Receive Date: 20251112
  Receipt Date: 20251112
  Transmission Date: 20260118
  Serious: Yes (Death)
  Sender: ANI
  Company Number: IN-ANIPHARMA-031101

PATIENT
  Age: 21 Year
  Sex: Female

DRUGS (4)
  1. CYCLOPHOSPHAMIDE [Suspect]
     Active Substance: CYCLOPHOSPHAMIDE
     Indication: Anaplastic large cell lymphoma T- and null-cell types
     Dosage: CHOP CHEMOTHERAPY
  2. DOXORUBICIN [Concomitant]
     Active Substance: DOXORUBICIN
     Indication: Anaplastic large cell lymphoma T- and null-cell types
     Dosage: CHOP CHEMOTHERAPY
  3. PREDNISONE [Concomitant]
     Active Substance: PREDNISONE
     Indication: Anaplastic large cell lymphoma T- and null-cell types
     Dosage: CHOP CHEMOTHERAPY
  4. VINCRISTINE [Concomitant]
     Active Substance: VINCRISTINE
     Indication: Anaplastic large cell lymphoma T- and null-cell types
     Dosage: CHOP CHEMOTHERAPY

REACTIONS (1)
  - Drug ineffective [Fatal]
